FAERS Safety Report 7354051-8 (Version None)
Quarter: 2011Q1

REPORT INFORMATION
  Report Type: 
  Country: None (occurrence: None)
  Receive Date: 20110315
  Receipt Date: 20110310
  Transmission Date: 20110831
  Serious: Yes (Life-Threatening, Hospitalization, Disabling)
  Sender: FDA-Public Use
  Company Number: PHFR2011GB01844

PATIENT
  Age: 15 Year
  Sex: Female
  Weight: 68 kg

DRUGS (8)
  1. REMICADE [Suspect]
     Indication: STEM CELL TRANSPLANT
  2. THALIDOMIDE [Concomitant]
  3. SIMULECT [Suspect]
     Indication: CROHN'S DISEASE
     Dosage: 20 MG, 1/2 WEEKS
     Route: 042
     Dates: start: 20100801
  4. URSODIOL [Concomitant]
  5. SIMULECT [Suspect]
     Indication: STEM CELL TRANSPLANT
  6. REMICADE [Suspect]
     Indication: CROHN'S DISEASE
     Dosage: UNK
     Route: 042
     Dates: start: 20100801
  7. METHOTREXATE [Concomitant]
  8. REMICADE [Suspect]
     Indication: IMMUNOSUPPRESSION

REACTIONS (3)
  - RENAL FAILURE ACUTE [None]
  - KLEBSIELLA SEPSIS [None]
  - EXTREMITY NECROSIS [None]
